FAERS Safety Report 5794742-3 (Version None)
Quarter: 2008Q2

REPORT INFORMATION
  Report Type: 
  Country: None (occurrence: None)
  Receive Date: 20080625
  Receipt Date: 20080521
  Transmission Date: 20081010
  Serious: Yes (Other)
  Sender: FDA-Public Use
  Company Number: 2008S1008863

PATIENT
  Age: 58 Year
  Sex: Female

DRUGS (2)
  1. WARFARIN 9WARFARIN) [Suspect]
     Indication: ATRIAL FIBRILLATION
  2. INSULIN (INSULIN) [Concomitant]

REACTIONS (3)
  - CALCIPHYLAXIS [None]
  - LIVEDO RETICULARIS [None]
  - SKIN NECROSIS [None]
